FAERS Safety Report 4957277-3 (Version None)
Quarter: 2006Q1

REPORT INFORMATION
  Report Type: 
  Country: None (occurrence: None)
  Receive Date: 20060323
  Receipt Date: 20060310
  Transmission Date: 20060701
  Serious: Yes (Hospitalization, Other)
  Sender: FDA-Public Use
  Company Number: 2006038644

PATIENT
  Sex: Male
  Weight: 86.1834 kg

DRUGS (1)
  1. ZOLOFT [Suspect]
     Indication: DEPRESSION
     Dosage: 10 YEARS AGO

REACTIONS (9)
  - APHAGIA [None]
  - CEREBROVASCULAR ACCIDENT [None]
  - CONDITION AGGRAVATED [None]
  - DEPRESSION [None]
  - DRUG INEFFECTIVE [None]
  - FALL [None]
  - HYPERTENSION [None]
  - LIMB INJURY [None]
  - TREATMENT NONCOMPLIANCE [None]
